FAERS Safety Report 9310464 (Version 2)
Quarter: 2013Q2

REPORT INFORMATION
  Report Type: Report from Study
  Country: US (occurrence: US)
  Receive Date: 20130527
  Receipt Date: 20130603
  Transmission Date: 20140414
  Serious: Yes (Death)
  Sender: FDA-Public Use
  Company Number: PHEH2013US011535

PATIENT
  Sex: Female

DRUGS (1)
  1. AFINITOR [Suspect]
     Indication: CARCINOID TUMOUR
     Dosage: 5 MG, QD
     Route: 048

REACTIONS (4)
  - Carcinoid tumour of the small bowel [Fatal]
  - Intestinal obstruction [Fatal]
  - Malignant neoplasm progression [Fatal]
  - Metastatic neoplasm [Fatal]
